FAERS Safety Report 8058984-9 (Version None)
Quarter: 2012Q1

REPORT INFORMATION
  Report Type: 
  Country: None (occurrence: None)
  Receive Date: 20120120
  Receipt Date: 20110204
  Transmission Date: 20120608
  Serious: No
  Sender: FDA-Public Use
  Company Number: US-BAUSCH-2011BL000758

PATIENT
  Age: 68 Year
  Sex: Male

DRUGS (4)
  1. TOBRAMYCIN [Suspect]
     Indication: EYE INFECTION
     Route: 047
     Dates: start: 20110131, end: 20110203
  2. CALCIUM [Concomitant]
  3. CRESTOR [Concomitant]
  4. VITAMIN B COMPLEX CAP [Concomitant]

REACTIONS (2)
  - DIPLOPIA [None]
  - VISION BLURRED [None]
